FAERS Safety Report 23529279 (Version 2)
Quarter: 2024Q1

REPORT INFORMATION
  Report Type: Spontaneous
  Country: DE (occurrence: DE)
  Receive Date: 20240216
  Receipt Date: 20240307
  Transmission Date: 20240410
  Serious: Yes (Hospitalization)
  Sender: FDA-Public Use
  Company Number: DE-BoehringerIngelheim-2024-BI-005567

PATIENT
  Age: 57 Year
  Sex: Female
  Weight: 73 kg

DRUGS (2)
  1. JARDIANCE [Suspect]
     Active Substance: EMPAGLIFLOZIN
     Indication: Type 2 diabetes mellitus
  2. METFORMIN HYDROCHLORIDE [Concomitant]
     Active Substance: METFORMIN HYDROCHLORIDE
     Indication: Type 2 diabetes mellitus

REACTIONS (7)
  - Gastrointestinal disorder [Unknown]
  - Nausea [Unknown]
  - Abdominal pain [Unknown]
  - Acidosis [Unknown]
  - Ketoacidosis [Recovered/Resolved]
  - Blood ketone body increased [Unknown]
  - Adhesion [Unknown]

NARRATIVE: CASE EVENT DATE: 20231212
